FAERS Safety Report 6888167-7 (Version None)
Quarter: 2010Q3

REPORT INFORMATION
  Report Type: 
  Country: None (occurrence: None)
  Receive Date: 20100730
  Receipt Date: 20100722
  Transmission Date: 20110219
  Serious: Yes (Other)
  Sender: FDA-Public Use
  Company Number: US-TEVA-232345USA

PATIENT
  Sex: Male

DRUGS (1)
  1. CIMETIDINE 200 MG, 300 MG + 400 MG TABLETS [Suspect]
     Indication: SKIN PAPILLOMA
     Dates: start: 20050601, end: 20050901

REACTIONS (7)
  - ASTHENIA [None]
  - CONVULSION [None]
  - DEPRESSION [None]
  - DIZZINESS [None]
  - DYSKINESIA [None]
  - FATIGUE [None]
  - HALLUCINATION [None]
